FAERS Safety Report 12184476 (Version 1)
Quarter: 2016Q1

REPORT INFORMATION
  Report Type: Spontaneous
  Country: US (occurrence: US)
  Receive Date: 20160316
  Receipt Date: 20160316
  Transmission Date: 20160526
  Serious: Yes (Other)
  Sender: FDA-Public Use
  Company Number: US-PFIZER INC-2016153222

PATIENT
  Age: 59 Year
  Sex: Male

DRUGS (6)
  1. CORTISONE ACETATE. [Suspect]
     Active Substance: CORTISONE ACETATE
     Indication: RHEUMATOID ARTHRITIS
     Dosage: 100 MG, 3X/DAY
     Route: 030
  2. ACTH [Suspect]
     Active Substance: CORTICOTROPIN
     Indication: RHEUMATOID ARTHRITIS
     Dosage: 90 MG, DAILY ( IN DIVIDED DOSES WITHIN TWENTY-FOUR HOURS)
  3. CORTONE [Suspect]
     Active Substance: CORTISONE ACETATE
     Dosage: 25 MG, 2X/DAY
     Route: 048
  4. CORTISONE ACETATE. [Suspect]
     Active Substance: CORTISONE ACETATE
     Dosage: 100 MG, 2X/DAY
     Route: 030
  5. CORTISONE ACETATE. [Suspect]
     Active Substance: CORTISONE ACETATE
     Dosage: 100 MG, 1X/DAY
     Route: 030
  6. CORTONE [Suspect]
     Active Substance: CORTISONE ACETATE
     Indication: RHEUMATOID ARTHRITIS
     Dosage: 100 MG, DAILY
     Route: 048

REACTIONS (3)
  - Euphoric mood [Unknown]
  - Hallucination, visual [Unknown]
  - Drug ineffective [Unknown]

NARRATIVE: CASE EVENT DATE: 19510212
